FAERS Safety Report 25863165 (Version 2)
Quarter: 2025Q4

REPORT INFORMATION
  Report Type: Spontaneous
  Country: EU (occurrence: EU)
  Receive Date: 20250930
  Receipt Date: 20251024
  Transmission Date: 20260117
  Serious: No
  Sender: ABBVIE
  Company Number: EU-ABBVIE-6479500

PATIENT
  Sex: Female

DRUGS (1)
  1. SKYRIZI [Suspect]
     Active Substance: RISANKIZUMAB-RZAA
     Indication: Product used for unknown indication
     Dosage: DOSE FORM: SOLUTION FOR INJECTION IN CARTRIDGE
     Route: 058

REACTIONS (2)
  - Incorrect dose administered [Unknown]
  - Device issue [Unknown]

NARRATIVE: CASE EVENT DATE: 20250923
